FAERS Safety Report 25775732 (Version 2)
Quarter: 2025Q4

REPORT INFORMATION
  Report Type: Report from Study
  Country: US (occurrence: US)
  Receive Date: 20250909
  Receipt Date: 20251015
  Transmission Date: 20260117
  Serious: Yes (Hospitalization)
  Sender: RECORDATI
  Company Number: US-ORPHANEU-2025006277

PATIENT
  Age: 22 Year
  Sex: Female
  Weight: 81.633 kg

DRUGS (11)
  1. ISTURISA [Suspect]
     Active Substance: OSILODROSTAT PHOSPHATE
     Indication: Pituitary-dependent Cushing^s syndrome
     Dosage: 2 MG, BID (STRENGTH: 1 MG TABLET)
     Route: 048
  2. ISTURISA [Suspect]
     Active Substance: OSILODROSTAT PHOSPHATE
     Dosage: 10 MG, BID (STRENGTH: 5 MG TABLET)
     Route: 048
     Dates: end: 202508
  3. ISTURISA [Suspect]
     Active Substance: OSILODROSTAT PHOSPHATE
     Dosage: 7.5 MG, BID
     Route: 048
     Dates: start: 202508, end: 202509
  4. ISTURISA [Suspect]
     Active Substance: OSILODROSTAT PHOSPHATE
     Dosage: 7.5 MILLIGRAM, BID
     Route: 048
     Dates: start: 202509
  5. LURASIDONE [Suspect]
     Active Substance: LURASIDONE
     Indication: Mental disorder
     Dosage: 20 MG, QD (TABLET 20 MG)
     Route: 048
     Dates: start: 20250410, end: 2025
  6. AUVELITY [Concomitant]
     Active Substance: BUPROPION HYDROCHLORIDE\DEXTROMETHORPHAN HYDROBROMIDE
     Indication: Product used for unknown indication
     Dosage: 45-105 MG, TWICE A DAY (TABLET EXTENDED RELEASE)
     Route: 048
     Dates: start: 20250301
  7. CRANBERRY [Concomitant]
     Active Substance: CRANBERRY
     Indication: Product used for unknown indication
     Dosage: 250 MG, QD (CAPSULE 250 MG)
     Route: 048
     Dates: start: 20240102
  8. POTASSIUM CHLORIDE EXTENDED RELEASE [Concomitant]
     Active Substance: POTASSIUM CHLORIDE
     Indication: Product used for unknown indication
     Dosage: 20 MEQ, DAILY (TABLET ER)
     Route: 048
     Dates: start: 20240102
  9. PROPRANOLOL HYDROCHLORIDE [Concomitant]
     Active Substance: PROPRANOLOL HYDROCHLORIDE
     Indication: Product used for unknown indication
     Dosage: 120 MG DAILY (ER CAPSULE)
     Route: 048
     Dates: start: 20250320
  10. SPIRONOLACTONE [Concomitant]
     Active Substance: SPIRONOLACTONE
     Indication: Product used for unknown indication
     Dosage: 200 MG, DAILY (TABLET 100 MG)
     Route: 048
     Dates: start: 20240102
  11. TRINTELLIX [Concomitant]
     Active Substance: VORTIOXETINE HYDROBROMIDE
     Indication: Product used for unknown indication
     Dosage: 10 MG, QD (TABLET 10 MG)
     Route: 048
     Dates: start: 20240102

REACTIONS (7)
  - Seizure [Unknown]
  - Mood altered [Unknown]
  - Mental status changes [Unknown]
  - Cortisol decreased [Recovered/Resolved]
  - Asthenia [Unknown]
  - Fatigue [Unknown]
  - Wrong technique in product usage process [Recovered/Resolved]

NARRATIVE: CASE EVENT DATE: 20250801
